FAERS Safety Report 6163545-2 (Version None)
Quarter: 2009Q2

REPORT INFORMATION
  Report Type: 
  Country: None (occurrence: None)
  Receive Date: 20090420
  Receipt Date: 20080821
  Transmission Date: 20091009
  Serious: Yes (Hospitalization)
  Sender: FDA-Public Use
  Company Number: SPV1-2008-00656

PATIENT
  Age: 24 Year
  Sex: Female
  Weight: 98.9 kg

DRUGS (2)
  1. 476 (MESALAZINE/MESALAMINE)(476 (MESALAZINE/MESALAMINE)) TABLET [Suspect]
     Indication: COLITIS ULCERATIVE
     Dosage: ORAL
     Route: 048
     Dates: start: 20080122, end: 20080220
  2. PREDNISONE [Concomitant]

REACTIONS (1)
  - COLITIS ULCERATIVE [None]
